FAERS Safety Report 7613858-X (Version None)
Quarter: 2011Q3

REPORT INFORMATION
  Report Type: 
  Country: None (occurrence: None)
  Receive Date: 20110708
  Receipt Date: 20110628
  Transmission Date: 20111222
  Serious: Yes (Other)
  Sender: FDA-Public Use
  Company Number: CIP11001566

PATIENT
  Age: 60 Year
  Sex: Female

DRUGS (2)
  1. ATELVIA [Suspect]
     Indication: BONE DENSITY DECREASED
     Dosage: 35 MG WEEKLY, ORAL
     Route: 048
     Dates: end: 20110501
  2. ACTONEL [Suspect]
     Indication: BONE DENSITY DECREASED
     Dosage: 35 MG WEEKLY, ORAL
     Route: 048
     Dates: start: 20071201

REACTIONS (2)
  - PATHOLOGICAL FRACTURE [None]
  - TIBIA FRACTURE [None]
